FAERS Safety Report 16616598 (Version 1)
Quarter: 2019Q3

REPORT INFORMATION
  Report Type: Spontaneous
  Country: US (occurrence: US)
  Receive Date: 20190719
  Receipt Date: 20190719
  Transmission Date: 20191004
  Serious: Yes (Disabling, Other)
  Sender: FDA-Public Use
  Company Number: None

PATIENT
  Age: 45 Year
  Sex: Male
  Weight: 126 kg

DRUGS (5)
  1. TRUORGANICS HIGH CBD OIL TINCTURE 900MG CBD [Suspect]
     Active Substance: CANNABIDIOL\HERBALS
     Indication: PAIN
     Dosage: ?          QUANTITY:1 ML;?
     Route: 060
  2. EXCEDRIN [Concomitant]
     Active Substance: ACETAMINOPHEN\ASPIRIN\CAFFEINE
  3. IBUPROFEN. [Concomitant]
     Active Substance: IBUPROFEN
  4. NEXIUM [Concomitant]
     Active Substance: ESOMEPRAZOLE MAGNESIUM
  5. ZYRTEC [Concomitant]
     Active Substance: CETIRIZINE HYDROCHLORIDE

REACTIONS (7)
  - Diarrhoea [None]
  - Abdominal pain upper [None]
  - Back pain [None]
  - Drug ineffective [None]
  - Drug screen positive [None]
  - Flank pain [None]
  - Product label confusion [None]

NARRATIVE: CASE EVENT DATE: 20190708
